FAERS Safety Report 17059288 (Version 1)
Quarter: 2019Q4

REPORT INFORMATION
  Report Type: Spontaneous
  Country: AR (occurrence: AR)
  Receive Date: 20191121
  Receipt Date: 20191121
  Transmission Date: 20200122
  Serious: Yes (Other)
  Sender: FDA-Public Use
  Company Number: AR-PFIZER INC-2019500432

PATIENT
  Age: 69 Year
  Sex: Female

DRUGS (1)
  1. XELJANZ [Suspect]
     Active Substance: TOFACITINIB CITRATE
     Indication: RHEUMATOID ARTHRITIS
     Dosage: 5 MG, 2X/DAY
     Dates: start: 20160530

REACTIONS (5)
  - Neuropathy peripheral [Unknown]
  - Gait disturbance [Unknown]
  - Muscle spasms [Unknown]
  - Dependence on oxygen therapy [Unknown]
  - Muscle disorder [Unknown]
